FAERS Safety Report 12695885 (Version 4)
Quarter: 2017Q3

REPORT INFORMATION
  Report Type: Spontaneous
  Country: US (occurrence: US)
  Receive Date: 20160829
  Receipt Date: 20170712
  Transmission Date: 20171127
  Serious: Yes (Death, Hospitalization)
  Sender: FDA-Public Use
  Company Number: US-PFIZER INC-2016397826

PATIENT
  Age: 77 Year
  Sex: Male
  Weight: 58.97 kg

DRUGS (3)
  1. TYVASO [Concomitant]
     Active Substance: TREPROSTINIL
     Dosage: UNK
     Dates: start: 2012
  2. REVATIO [Suspect]
     Active Substance: SILDENAFIL CITRATE
     Dosage: UNK
     Dates: end: 201705
  3. REVATIO [Suspect]
     Active Substance: SILDENAFIL CITRATE
     Indication: PULMONARY ARTERIAL HYPERTENSION
     Dosage: 20 MG, 3X/DAY
     Dates: start: 2012

REACTIONS (11)
  - Asthenia [Unknown]
  - Respiratory arrest [Fatal]
  - Amnesia [Not Recovered/Not Resolved]
  - Dizziness [Unknown]
  - Pulmonary arterial hypertension [Fatal]
  - Fall [Unknown]
  - Malaise [Unknown]
  - Blood pressure abnormal [Fatal]
  - Feeling abnormal [Unknown]
  - Arthralgia [Unknown]
  - General physical health deterioration [Unknown]

NARRATIVE: CASE EVENT DATE: 201606
